FAERS Safety Report 20900053 (Version 3)
Quarter: 2022Q2

REPORT INFORMATION
  Report Type: Spontaneous
  Country: CA (occurrence: CA)
  Receive Date: 20220601
  Receipt Date: 20220623
  Transmission Date: 20220721
  Serious: Yes (Death, Other)
  Sender: FDA-Public Use
  Company Number: CA-BAYER-2022A013571

PATIENT
  Age: 34 Year
  Sex: Male

DRUGS (2)
  1. GADOBUTROL [Suspect]
     Active Substance: GADOBUTROL
     Indication: Magnetic resonance imaging heart
     Dosage: 13 ML, ONCE
     Route: 042
     Dates: start: 20220125, end: 20220125
  2. GADOBUTROL [Suspect]
     Active Substance: GADOBUTROL
     Indication: Magnetic resonance imaging heart
     Dosage: 7 UNK
     Route: 042
     Dates: start: 20220125, end: 20220125

REACTIONS (8)
  - Anaphylactic reaction [Fatal]
  - Cardiac arrest [Fatal]
  - Nausea [Fatal]
  - Dizziness [Fatal]
  - Seizure like phenomena [Fatal]
  - Emotional distress [Fatal]
  - Seizure [Fatal]
  - Dysstasia [Fatal]

NARRATIVE: CASE EVENT DATE: 20220125
